FAERS Safety Report 23429774 (Version 1)
Quarter: 2024Q1

REPORT INFORMATION
  Report Type: Spontaneous
  Country: US (occurrence: US)
  Receive Date: 20240122
  Receipt Date: 20240122
  Transmission Date: 20240410
  Serious: No
  Sender: FDA-Public Use
  Company Number: US-INSUD PHARMA-2401US00196

PATIENT

DRUGS (1)
  1. ENILLORING [Suspect]
     Active Substance: ETHINYL ESTRADIOL\ETONOGESTREL
     Indication: Exposure via direct contact
     Dosage: UNK
     Route: 050
     Dates: start: 202401

REACTIONS (5)
  - Penis injury [Unknown]
  - Penile pain [Unknown]
  - Injury associated with device [Unknown]
  - Product substitution issue [Unknown]
  - Product quality issue [Unknown]

NARRATIVE: CASE EVENT DATE: 20240101
